FAERS Safety Report 6132526-7 (Version None)
Quarter: 2009Q1

REPORT INFORMATION
  Report Type: 
  Country: None (occurrence: None)
  Receive Date: 20090325
  Receipt Date: 20090310
  Transmission Date: 20090719
  Serious: Yes (Hospitalization)
  Sender: FDA-Public Use
  Company Number: FR-GENENTECH-276925

PATIENT
  Sex: Female

DRUGS (4)
  1. BEVACIZUMAB [Suspect]
     Indication: BREAST CANCER
     Dosage: 830 MG, Q3W
     Route: 042
     Dates: start: 20080208
  2. EPIRUBICIN [Suspect]
     Indication: BREAST CANCER
     Dosage: 156 MG, Q3W
     Route: 042
     Dates: start: 20080208
  3. CYCLOPHOSPHAMIDE [Suspect]
     Indication: BREAST CANCER
     Dosage: 780 MG, Q3W
     Route: 042
     Dates: start: 20080208
  4. FLUOROURACIL [Suspect]
     Indication: BREAST CANCER
     Dosage: 780 MG, Q3W
     Route: 042
     Dates: start: 20080208

REACTIONS (1)
  - PNEUMOTHORAX [None]
